FAERS Safety Report 7108025-2 (Version None)
Quarter: 2010Q4

REPORT INFORMATION
  Report Type: 
  Country: None (occurrence: None)
  Receive Date: 20101109
  Receipt Date: 20101028
  Transmission Date: 20110411
  Serious: Yes (Other)
  Sender: FDA-Public Use
  Company Number: 2010SP057660

PATIENT

DRUGS (3)
  1. DULERA TABLET [Suspect]
     Indication: ASTHMA
     Dosage: ; INH
     Route: 055
  2. SYMBICORT [Concomitant]
  3. ADVAIR DISKUS 100/50 [Concomitant]

REACTIONS (2)
  - OEDEMA PERIPHERAL [None]
  - PERIORBITAL OEDEMA [None]
